FAERS Safety Report 13762059 (Version 2)
Quarter: 2017Q4

REPORT INFORMATION
  Report Type: Spontaneous
  Country: CA (occurrence: CA)
  Receive Date: 20170718
  Receipt Date: 20171123
  Transmission Date: 20180320
  Serious: Yes (Other)
  Sender: FDA-Public Use
  Company Number: CA-CONCORDIA PHARMACEUTICALS INC.-GSH201707-004067

PATIENT
  Age: 81 Year
  Sex: Female

DRUGS (10)
  1. SULFASALAZINE. [Suspect]
     Active Substance: SULFASALAZINE
     Indication: RHEUMATOID ARTHRITIS
     Route: 048
  2. ROSUVASTATIN. [Concomitant]
     Active Substance: ROSUVASTATIN
  3. PLAQUENIL [Suspect]
     Active Substance: HYDROXYCHLOROQUINE SULFATE
     Indication: PRODUCT USED FOR UNKNOWN INDICATION
     Route: 048
  4. ENBREL [Suspect]
     Active Substance: ETANERCEPT
     Indication: RHEUMATOID ARTHRITIS
     Route: 058
     Dates: start: 2011, end: 2012
  5. HYDROXYCHLOROQUINE [Concomitant]
     Active Substance: HYDROXYCHLOROQUINE
  6. CELEBREX [Concomitant]
     Active Substance: CELECOXIB
  7. METHOTREXATE. [Suspect]
     Active Substance: METHOTREXATE
     Indication: RHEUMATOID ARTHRITIS
     Dosage: EVERY OTHER WEEK
     Route: 065
     Dates: start: 2012
  8. PANTOPRAZOLE [Concomitant]
     Active Substance: PANTOPRAZOLE
  9. PERINDOPRIL [Concomitant]
     Active Substance: PERINDOPRIL
  10. FOLIC ACID. [Concomitant]
     Active Substance: FOLIC ACID

REACTIONS (16)
  - Musculoskeletal disorder [Unknown]
  - Treatment noncompliance [Unknown]
  - Hypoaesthesia [Unknown]
  - Bone erosion [Unknown]
  - Hip arthroplasty [Unknown]
  - Hypoaesthesia [Recovered/Resolved]
  - Drug ineffective [Unknown]
  - C-reactive protein abnormal [Unknown]
  - Diarrhoea [Recovered/Resolved]
  - Foot deformity [Unknown]
  - Knee arthroplasty [Unknown]
  - Joint swelling [Recovered/Resolved]
  - Red blood cell sedimentation rate abnormal [Unknown]
  - Drug intolerance [Recovered/Resolved]
  - Grip strength decreased [Unknown]
  - Pain in extremity [Unknown]

NARRATIVE: CASE EVENT DATE: 20160121
